FAERS Safety Report 6712060-3 (Version None)
Quarter: 2010Q2

REPORT INFORMATION
  Report Type: 
  Country: None (occurrence: None)
  Receive Date: 20100505
  Receipt Date: 20100422
  Transmission Date: 20101027
  Serious: Yes (Other)
  Sender: FDA-Public Use
  Company Number: PHHY2010CA25828

PATIENT
  Sex: Female

DRUGS (4)
  1. DIOVAN HCT [Suspect]
     Dosage: 1 DF, UNK
     Dates: start: 20090101
  2. LIPITOR [Concomitant]
  3. ASAPHEN [Concomitant]
     Dosage: 81 MG, UNK
  4. ADALAT [Concomitant]

REACTIONS (4)
  - BLOOD PRESSURE INADEQUATELY CONTROLLED [None]
  - DIZZINESS [None]
  - VERTIGO [None]
  - WEIGHT DECREASED [None]
